FAERS Safety Report 6034319-8 (Version None)
Quarter: 2009Q1

REPORT INFORMATION
  Report Type: 
  Country: None (occurrence: None)
  Receive Date: 20090112
  Receipt Date: 20090102
  Transmission Date: 20090719
  Serious: Yes (Hospitalization)
  Sender: FDA-Public Use
  Company Number: US-ABBOTT-09P-163-0495670-00

PATIENT
  Sex: Male

DRUGS (1)
  1. ZEMPLAR [Suspect]
     Indication: DRUG USE FOR UNKNOWN INDICATION

REACTIONS (7)
  - ABDOMINAL PAIN UPPER [None]
  - CARDIAC ARREST [None]
  - CHOLECYSTITIS INFECTIVE [None]
  - PERIPHERAL EMBOLISM [None]
  - PERITONITIS [None]
  - PULMONARY EMBOLISM [None]
  - VOMITING [None]
